FAERS Safety Report 19938410 (Version 2)
Quarter: 2021Q4

REPORT INFORMATION
  Report Type: Report from Study
  Country: CA (occurrence: CA)
  Receive Date: 20211011
  Receipt Date: 20211113
  Transmission Date: 20220303
  Serious: Yes (Other)
  Sender: FDA-Public Use
  Company Number: CA-ABBVIE-21K-028-4113826-00

PATIENT
  Age: 62 Year
  Sex: Female

DRUGS (2)
  1. HUMIRA [Suspect]
     Active Substance: ADALIMUMAB
     Indication: Product used for unknown indication
     Route: 058
  2. HUMIRA [Suspect]
     Active Substance: ADALIMUMAB
     Indication: Crohn^s disease
     Route: 058
     Dates: start: 20201218

REACTIONS (18)
  - Loss of consciousness [Unknown]
  - Pain [Not Recovered/Not Resolved]
  - Psoriasis [Unknown]
  - Hyperventilation [Unknown]
  - Loss of personal independence in daily activities [Unknown]
  - Memory impairment [Unknown]
  - Arthritis [Unknown]
  - Malaise [Unknown]
  - Constipation [Unknown]
  - Anal fissure haemorrhage [Not Recovered/Not Resolved]
  - Migraine [Unknown]
  - Abdominal pain [Unknown]
  - Crying [Unknown]
  - Drug ineffective [Unknown]
  - Vomiting [Unknown]
  - Body temperature decreased [Unknown]
  - Weight decreased [Unknown]
  - Fibromyalgia [Unknown]

NARRATIVE: CASE EVENT DATE: 20201201
